FAERS Safety Report 22063459 (Version 1)
Quarter: 2023Q1

REPORT INFORMATION
  Report Type: Spontaneous
  Country: FI (occurrence: FI)
  Receive Date: 20230306
  Receipt Date: 20230306
  Transmission Date: 20230418
  Serious: Yes (Other)
  Sender: FDA-Public Use
  Company Number: FI-CELLTRION INC.-2022FI017443

PATIENT

DRUGS (1)
  1. INFLIXIMAB [Suspect]
     Active Substance: INFLIXIMAB
     Indication: Colitis
     Dosage: 120 MG PRE-FILLED PEN/ 1 DOS 120MG IN 14 WEEK INTERVALS; AFTER THAT EVERY 2 WEEKS (MEDICINE BOUGHT:
     Route: 058
     Dates: start: 202207

REACTIONS (5)
  - Injection site pain [Unknown]
  - Device leakage [Unknown]
  - Exposure via skin contact [Unknown]
  - Accidental exposure to product [Unknown]
  - Incorrect dose administered by device [Unknown]
